FAERS Safety Report 9791894 (Version 1)
Quarter: 2014Q1

REPORT INFORMATION
  Report Type: Spontaneous
  Country: US (occurrence: US)
  Receive Date: 20140102
  Receipt Date: 20140102
  Transmission Date: 20141002
  Serious: No
  Sender: FDA-Public Use
  Company Number: US-PFIZER INC-2013372699

PATIENT
  Age: 67 Year
  Sex: Female
  Weight: 65.76 kg

DRUGS (4)
  1. CALAN SR [Suspect]
     Indication: HYPERTENSION
     Dosage: 180 MG, UNK
     Dates: end: 2011
  2. CALAN SR [Suspect]
     Dosage: 240 MG, UNK
     Dates: start: 2011
  3. LOTENSIN [Concomitant]
     Indication: HYPERTENSION
     Dosage: 40 MG, 2X/DAY
  4. LEVOTHYROXINE [Concomitant]
     Indication: HYPOTHYROIDISM
     Dosage: 50 UG, 1X/DAY

REACTIONS (1)
  - Headache [Recovered/Resolved]
